FAERS Safety Report 10769714 (Version 1)
Quarter: 2015Q1

REPORT INFORMATION
  Report Type: Spontaneous
  Country: US (occurrence: None)
  Receive Date: 20150204
  Receipt Date: 20150204
  Transmission Date: 20150721
  Serious: Yes (Death)
  Sender: FDA-Public Use
  Company Number: 2729240

PATIENT
  Age: 59 Year
  Sex: Female

DRUGS (3)
  1. PENTOBARBITAL [Suspect]
     Active Substance: PENTOBARBITAL
     Dosage: PARENTERAL
  2. PHENYTOIN. [Suspect]
     Active Substance: PHENYTOIN
     Dosage: PARENTERAL
  3. TETRACAINE [Suspect]
     Active Substance: TETRACAINE\TETRACAINE HYDROCHLORIDE
     Dosage: PARENTERAL

REACTIONS (12)
  - Cardiac arrest [None]
  - Toxicity to various agents [None]
  - Blood sodium decreased [None]
  - Blood potassium decreased [None]
  - Intentional product misuse [None]
  - Completed suicide [None]
  - Hypotension [None]
  - Bradycardia [None]
  - Blood pH decreased [None]
  - Respiratory arrest [None]
  - No therapeutic response [None]
  - PO2 increased [None]

NARRATIVE: CASE EVENT DATE: 2013
